FAERS Safety Report 6383485-3 (Version None)
Quarter: 2009Q3

REPORT INFORMATION
  Report Type: 
  Country: None (occurrence: None)
  Receive Date: 20090928
  Receipt Date: 20090608
  Transmission Date: 20100115
  Serious: Yes (Hospitalization)
  Sender: FDA-Public Use
  Company Number: ADR3052009

PATIENT
  Age: 86 Year
  Sex: Male

DRUGS (8)
  1. AMLODIPINE [Suspect]
     Indication: HYPERTONIA
     Dosage: 5 MG ORAL
     Route: 048
     Dates: start: 20070101, end: 20080727
  2. ENALAPRIL MALEATE [Concomitant]
  3. XIPAMIDE [Concomitant]
  4. CETITRIZINE [Concomitant]
  5. NOVALGIN [Concomitant]
  6. ASPIRIN [Concomitant]
  7. TAVANIC [Concomitant]
  8. BISPROLOL [Concomitant]

REACTIONS (2)
  - DRUG INTERACTION [None]
  - RENAL FAILURE ACUTE [None]
